FAERS Safety Report 18762861 (Version 1)
Quarter: 2021Q1

REPORT INFORMATION
  Report Type: Spontaneous
  Country: US (occurrence: US)
  Receive Date: 20210120
  Receipt Date: 20210120
  Transmission Date: 20210419
  Serious: Yes (Life-Threatening, Hospitalization, Disabling)
  Sender: FDA-Public Use
  Company Number: None

PATIENT
  Age: 41 Year
  Sex: Male

DRUGS (1)
  1. ADAKVEO [Suspect]
     Active Substance: CRIZANLIZUMAB-TMCA

REACTIONS (16)
  - Multiple organ dysfunction syndrome [None]
  - Thrombocytopenia [None]
  - Haemolytic anaemia [None]
  - Haemoglobin [None]
  - Mental status changes [None]
  - Acute kidney injury [None]
  - Hypersensitivity [None]
  - Fatigue [None]
  - Pyrexia [None]
  - Blood immunoglobulin G increased [None]
  - Haemoglobin decreased [None]
  - Pain [None]
  - Lymphocytosis [None]
  - General physical health deterioration [None]
  - Hypotension [None]
  - Dialysis [None]

NARRATIVE: CASE EVENT DATE: 20201017
